FAERS Safety Report 14270656 (Version 1)
Quarter: 2017Q4

REPORT INFORMATION
  Report Type: Report from Study
  Country: None (occurrence: ES)
  Receive Date: 20171211
  Receipt Date: 20171211
  Transmission Date: 20180321
  Serious: Yes (Hospitalization)
  Sender: FDA-Public Use
  Company Number: ES-ABBVIE-17K-144-2183748-00

PATIENT
  Age: 56 Year
  Sex: Female
  Weight: 66 kg

DRUGS (2)
  1. HUMIRA [Suspect]
     Active Substance: ADALIMUMAB
     Indication: PSORIATIC ARTHROPATHY
     Route: 058
     Dates: start: 201711
  2. HUMIRA [Suspect]
     Active Substance: ADALIMUMAB
     Indication: PSORIATIC ARTHROPATHY
     Route: 058
     Dates: end: 201607

REACTIONS (8)
  - Anaemia [Recovered/Resolved]
  - C-reactive protein abnormal [Not Recovered/Not Resolved]
  - Cheilitis [Recovered/Resolved]
  - Exposure via direct contact [Unknown]
  - Weight decreased [Recovered/Resolved]
  - Skin mass [Recovered/Resolved]
  - Glossitis [Recovered/Resolved]
  - Pyrexia [Recovered/Resolved]

NARRATIVE: CASE EVENT DATE: 201607
